FAERS Safety Report 8524191-6 (Version None)
Quarter: 2012Q3

REPORT INFORMATION
  Report Type: 
  Country: None (occurrence: None)
  Receive Date: 20120716
  Receipt Date: 20120716
  Transmission Date: 20120928
  Serious: Yes (Life-Threatening, Hospitalization, Other)
  Sender: FDA-Public Use
  Company Number: None

PATIENT
  Age: 43 Year
  Sex: Female
  Weight: 56.6996 kg

DRUGS (6)
  1. CYMBALTA 30 MG 1 TIME DAILY STARTED IN JANUARY WHILE IN HOSP FOR DRUG [Concomitant]
  2. LAMOTRIGINE 150 MG 1 TIME DAILY STARTED OCTOBER 2011 [Concomitant]
  3. LORAZEPAM [Suspect]
     Indication: ANXIETY
     Dosage: 1-2 DAILY PO
     Route: 048
     Dates: start: 20070502, end: 20110509
  4. TRAZODONE HCL [Suspect]
     Indication: SLEEP DISORDER THERAPY
     Dosage: 1 DAILY PO
     Route: 048
     Dates: start: 20110501, end: 20120301
  5. GABAPENTIN 300 MG 1-3 TIMES DAILY STARTED AUGUST 2011 [Concomitant]
  6. CITALOPRAM 40 MG 1 TIME DAILY BEEN TAKING FOR YEARS WITH THE LORAZEPAM [Concomitant]

REACTIONS (17)
  - FALL [None]
  - INSOMNIA [None]
  - ROAD TRAFFIC ACCIDENT [None]
  - FEELING ABNORMAL [None]
  - DRUG WITHDRAWAL SYNDROME [None]
  - LOSS OF CONSCIOUSNESS [None]
  - HEAD INJURY [None]
  - DYSSTASIA [None]
  - RESPIRATORY DISTRESS [None]
  - IMPAIRED SELF-CARE [None]
  - HALLUCINATION [None]
  - FEAR [None]
  - MENTAL DISORDER [None]
  - ABASIA [None]
  - OVERDOSE [None]
  - COMA [None]
  - DRUG ADMINISTRATION ERROR [None]
